FAERS Safety Report 7213151 (Version 18)
Quarter: 2012Q4

REPORT INFORMATION
  Report Type: 
  Country: CA (occurrence: CA)
  Receive Date: 20091211
  Receipt Date: 20121111
  Transmission Date: 20130627
  Serious: Yes (Other)
  Sender: FDA-Public Use
  Company Number: PHHY2009CA17705

PATIENT
  Sex: Female

DRUGS (4)
  1. SANDOSTATIN LAR [Suspect]
     Indication: ACROMEGALY
     Dosage: 30 mg, once a month
     Route: 030
     Dates: start: 20080414
  2. SANDOSTATIN LAR [Suspect]
     Dosage: 30 mg, Every 4 weeks
     Route: 030
     Dates: end: 20090630
  3. SANDOSTATIN LAR [Suspect]
     Dosage: 40 mg, QMO
     Route: 030
  4. SANDOSTATIN LAR [Suspect]
     Dosage: 30 mg, every 4 weeks
     Route: 030
     Dates: end: 20120208

REACTIONS (18)
  - Cholelithiasis [Unknown]
  - Diarrhoea [Recovering/Resolving]
  - Immunoglobulins increased [Unknown]
  - Gastrointestinal disorder [Recovering/Resolving]
  - Abdominal distension [Unknown]
  - Tenderness [Unknown]
  - Sensation of pressure [Unknown]
  - Malaise [Unknown]
  - Arthralgia [Unknown]
  - Headache [Unknown]
  - Flatulence [Unknown]
  - Fatigue [Unknown]
  - Asthenia [Unknown]
  - Injection site pain [Unknown]
  - Blood growth hormone abnormal [Unknown]
  - Nausea [Unknown]
  - Constipation [Unknown]
  - Drug ineffective [Unknown]
